FAERS Safety Report 6192396-8 (Version None)
Quarter: 2009Q2

REPORT INFORMATION
  Report Type: 
  Country: None (occurrence: None)
  Receive Date: 20090513
  Receipt Date: 20090513
  Transmission Date: 20091009
  Serious: Yes (Life-Threatening)
  Sender: FDA-Public Use
  Company Number: None

PATIENT
  Sex: Male
  Weight: 68.9467 kg

DRUGS (3)
  1. K DILT-XR 180MG CAP DILCOR-XR [Suspect]
     Indication: ATRIAL FIBRILLATION
     Dosage: 1   1 A DAY
     Dates: start: 20081223, end: 20090101
  2. K DILT-XR 180MG CAP DILCOR-XR [Suspect]
     Indication: ATRIAL FIBRILLATION
     Dosage: 1   1 A DAY
     Dates: start: 20090425, end: 20090426
  3. K DILT-XR 180MG CAP DILCOR -XR [Suspect]

REACTIONS (4)
  - ATRIAL FIBRILLATION [None]
  - CARDIAC DISORDER [None]
  - CHOKING SENSATION [None]
  - HEART RATE INCREASED [None]
